FAERS Safety Report 25413657 (Version 1)
Quarter: 2025Q2

REPORT INFORMATION
  Report Type: Spontaneous
  Country: US (occurrence: None)
  Receive Date: 20250607
  Receipt Date: 20250607
  Transmission Date: 20250716
  Serious: Yes (Other)
  Sender: FDA-CTU
  Company Number: None

PATIENT
  Age: 49 Year
  Sex: Female
  Weight: 105.75 kg

DRUGS (13)
  1. MOUNJARO [Suspect]
     Active Substance: TIRZEPATIDE
     Indication: Type 2 diabetes mellitus
     Route: 058
  2. VRAYLAR [Concomitant]
     Active Substance: CARIPRAZINE
  3. MOUNJARO [Concomitant]
     Active Substance: TIRZEPATIDE
  4. Prij aspirin EC [Concomitant]
  5. BUPROPION [Concomitant]
     Active Substance: BUPROPION
  6. FERROUS SULFATE [Concomitant]
     Active Substance: FERROUS SULFATE
  7. ROSUVASTATIN [Concomitant]
     Active Substance: ROSUVASTATIN
  8. LISINOPRIL [Concomitant]
     Active Substance: LISINOPRIL
  9. METFORMIN [Concomitant]
     Active Substance: METFORMIN HYDROCHLORIDE
  10. CLONIDINE HYDROCHLORIDE [Concomitant]
     Active Substance: CLONIDINE HYDROCHLORIDE
  11. LAMOTRIGINE [Concomitant]
     Active Substance: LAMOTRIGINE
  12. LAMICTAL [Concomitant]
     Active Substance: LAMOTRIGINE
  13. LANSOPRAZOLE [Concomitant]
     Active Substance: LANSOPRAZOLE

REACTIONS (1)
  - Mania [None]

NARRATIVE: CASE EVENT DATE: 20250314
